FAERS Safety Report 6986615-5 (Version None)
Quarter: 2010Q3

REPORT INFORMATION
  Report Type: 
  Country: None (occurrence: None)
  Receive Date: 20100827
  Receipt Date: 20100301
  Transmission Date: 20110219
  Serious: Yes (Other)
  Sender: FDA-Public Use
  Company Number: AMAG201000145

PATIENT
  Age: 79 Year
  Sex: Male
  Weight: 76.6 kg

DRUGS (4)
  1. FERAHEME [Suspect]
     Indication: ANAEMIA
     Dosage: 510 MG, SINGLE, INTRAVENOUS
     Route: 042
     Dates: start: 20100215, end: 20100215
  2. FERAHEME [Suspect]
     Indication: ANAEMIA
     Dosage: 510 MG, SINGLE, INTRAVENOUS
     Route: 042
     Dates: start: 20100223, end: 20100223
  3. AGRYLIN [Concomitant]
  4. ANEMIA IN CKD (ANAEMIA) [Concomitant]

REACTIONS (4)
  - COUGH [None]
  - HYPOTENSION [None]
  - SOMNOLENCE [None]
  - VOMITING [None]
